FAERS Safety Report 5671965-5 (Version None)
Quarter: 2008Q1

REPORT INFORMATION
  Report Type: 
  Country: None (occurrence: None)
  Receive Date: 20080314
  Receipt Date: 20080229
  Transmission Date: 20080703
  Serious: Yes (Other)
  Sender: FDA-Public Use
  Company Number: 8028714

PATIENT
  Age: 29 Year
  Sex: Male

DRUGS (6)
  1. PREDNISOLONE [Suspect]
     Indication: RHINITIS ALLERGIC
     Dosage: 50 MG
     Dates: start: 20080116, end: 20080117
  2. SALBUTAMOL [Concomitant]
  3. FLIXONASE [Concomitant]
  4. NIQUITIN /01033301/ [Concomitant]
  5. SUDAFED /00070002/ [Concomitant]
  6. SYMBICORT [Concomitant]

REACTIONS (2)
  - PSYCHOTIC DISORDER [None]
  - SIMILAR REACTION ON PREVIOUS EXPOSURE TO DRUG [None]
